FAERS Safety Report 9533447 (Version 3)
Quarter: 2013Q4

REPORT INFORMATION
  Report Type: Spontaneous
  Country: US (occurrence: US)
  Receive Date: 20130918
  Receipt Date: 20131218
  Transmission Date: 20140711
  Serious: Yes (Death)
  Sender: FDA-Public Use
  Company Number: US-ALLERGAN-1314143US

PATIENT
  Age: 6 Year
  Sex: Male
  Weight: 25.53 kg

DRUGS (12)
  1. BOTOX [Suspect]
     Indication: CEREBRAL PALSY
     Dosage: UNK
     Route: 030
     Dates: start: 20130910, end: 20130910
  2. BOTOX [Suspect]
     Dosage: 350 UNITS, SINGLE
     Route: 030
     Dates: start: 2011, end: 2011
  3. BACLOFEN [Concomitant]
     Indication: PRODUCT USED FOR UNKNOWN INDICATION
     Dosage: 10 MG, TID
  4. BECLOMETHASONE                     /00212602/ [Concomitant]
     Indication: PRODUCT USED FOR UNKNOWN INDICATION
     Dosage: 80 ?G, INHALE 2 PUFFS DAILY
     Route: 055
  5. MENS POTENT FORMULA (CALCIUM/VITAMIN E/FA/VITAMIN B6/HERBS) [Concomitant]
     Indication: PRODUCT USED FOR UNKNOWN INDICATION
     Dosage: 50 MG, BID
     Route: 048
  6. CETIRIZINE [Concomitant]
     Indication: PRODUCT USED FOR UNKNOWN INDICATION
     Dosage: 5 ML, QD
     Route: 048
  7. ATROVENT [Concomitant]
     Indication: COUGH
     Dosage: 17 ?G, Q6HR, INHALE 2 PUFFS AS NEEDED
     Route: 055
  8. ATROVENT [Concomitant]
     Indication: WHEEZING
  9. ATROVENT [Concomitant]
     Indication: DYSPNOEA
  10. ZADITOR                            /00495201/ [Concomitant]
     Indication: PRODUCT USED FOR UNKNOWN INDICATION
     Dosage: 1 GTT, BID AS NEEDED
     Route: 047
  11. MELATONIN [Concomitant]
     Indication: PRODUCT USED FOR UNKNOWN INDICATION
     Dosage: 3 MG, QHS
     Route: 048
  12. TRANSDERM SCOP [Concomitant]
     Indication: PRODUCT USED FOR UNKNOWN INDICATION
     Dosage: 1 PATCH ON SKIN Q 72 HOURS

REACTIONS (2)
  - Off label use [Unknown]
  - Death [Fatal]
